FAERS Safety Report 16285993 (Version 1)
Quarter: 2019Q2

REPORT INFORMATION
  Report Type: Spontaneous
  Country: US (occurrence: US)
  Receive Date: 20190403
  Receipt Date: 20190403
  Transmission Date: 20190711
  Serious: Yes (Hospitalization)
  Sender: FDA-Public Use
  Company Number: None

PATIENT
  Age: 41 Year
  Sex: Female

DRUGS (24)
  1. GABAPENTIN. [Concomitant]
     Active Substance: GABAPENTIN
  2. ENOXAPARIN [Concomitant]
     Active Substance: ENOXAPARIN
  3. HYDROXYZ PAM [Concomitant]
     Active Substance: HYDROXYZINE PAMOATE
  4. NALTREXONE [Concomitant]
     Active Substance: NALTREXONE
  5. OLANZAPINE. [Concomitant]
     Active Substance: OLANZAPINE
  6. BUPROPION HCL [Concomitant]
     Active Substance: BUPROPION HYDROCHLORIDE
  7. CYCLOBENZAPAR [Concomitant]
  8. FAMOTIDINE. [Concomitant]
     Active Substance: FAMOTIDINE
  9. RELPAX [Concomitant]
     Active Substance: ELETRIPTAN HYDROBROMIDE
  10. NICOTINE TD [Concomitant]
  11. ONDANSETRON [Concomitant]
     Active Substance: ONDANSETRON
  12. CLONAZEPAM. [Concomitant]
     Active Substance: CLONAZEPAM
  13. METHOTREXATE. [Concomitant]
     Active Substance: METHOTREXATE
  14. MIRTAZPINE [Concomitant]
     Active Substance: MIRTAZAPINE
  15. OXYCODONE [Concomitant]
     Active Substance: OXYCODONE
  16. PRAZOSIN HCL [Concomitant]
     Active Substance: PRAZOSIN HYDROCHLORIDE
  17. PROAIR HFA [Concomitant]
     Active Substance: ALBUTEROL SULFATE
  18. TIZANIDINE. [Concomitant]
     Active Substance: TIZANIDINE
  19. COSENTYX [Suspect]
     Active Substance: SECUKINUMAB
     Indication: PSORIATIC ARTHROPATHY
     Route: 058
     Dates: start: 20180628
  20. QUETIAPINE. [Concomitant]
     Active Substance: QUETIAPINE
  21. FOLIC ACID. [Concomitant]
     Active Substance: FOLIC ACID
  22. LAMOTRIGINE. [Concomitant]
     Active Substance: LAMOTRIGINE
  23. MORPHINE [Concomitant]
     Active Substance: MORPHINE
  24. BUSPIRONE [Concomitant]
     Active Substance: BUSPIRONE HYDROCHLORIDE

REACTIONS (2)
  - Therapy cessation [None]
  - Ill-defined disorder [None]

NARRATIVE: CASE EVENT DATE: 20190301
